FAERS Safety Report 10239424 (Version 1)
Quarter: 2014Q2

REPORT INFORMATION
  Report Type: Report from Study
  Country: US (occurrence: US)
  Receive Date: 20140616
  Receipt Date: 20140616
  Transmission Date: 20141212
  Serious: Yes (Hospitalization)
  Sender: FDA-Public Use
  Company Number: US-TEVA-487848USA

PATIENT
  Age: 71 Year
  Sex: Female
  Weight: 101.7 kg

DRUGS (5)
  1. DAUNORUBICIN [Suspect]
     Dates: start: 20131127, end: 20131129
  2. CYTARABINE [Suspect]
     Dates: end: 20131128
  3. VITACAL [Concomitant]
  4. IBUPROFEN [Concomitant]
  5. LORATADINE [Concomitant]

REACTIONS (1)
  - Hypocalcaemia [Recovered/Resolved]
